FAERS Safety Report 4710381-7 (Version None)
Quarter: 2005Q3

REPORT INFORMATION
  Report Type: 
  Country: None (occurrence: None)
  Receive Date: 20050707
  Receipt Date: 20050607
  Transmission Date: 20060218
  Serious: Yes (Hospitalization, Disabling)
  Sender: FDA-Public Use
  Company Number: CERZ-10907

PATIENT
  Age: 36 Year
  Sex: Male

DRUGS (1)
  1. CEREZYME [Suspect]
     Indication: GAUCHER'S DISEASE
     Dosage: 8000 UNITS Q2WKS IV
     Route: 042
     Dates: start: 19990727

REACTIONS (2)
  - FALL [None]
  - LOWER LIMB FRACTURE [None]
